FAERS Safety Report 22170366 (Version 1)
Quarter: 2023Q2

REPORT INFORMATION
  Report Type: Spontaneous
  Country: AU (occurrence: AU)
  Receive Date: 20230404
  Receipt Date: 20230404
  Transmission Date: 20230721
  Serious: Yes (Other)
  Sender: FDA-Public Use
  Company Number: AU-BAXTER-2023BAX017051

PATIENT
  Age: 48 Year
  Sex: Male

DRUGS (10)
  1. DOXORUBICIN [Suspect]
     Active Substance: DOXORUBICIN
     Indication: Post transplant lymphoproliferative disorder
     Dosage: UNK, AS A PART OF RCHOP REGIMEN WITH COMPLETE MEDICAL RESPONSE (CMR)
     Route: 065
     Dates: end: 20190628
  2. DOXORUBICIN [Suspect]
     Active Substance: DOXORUBICIN
     Indication: Diffuse large B-cell lymphoma
  3. CYCLOPHOSPHAMIDE [Suspect]
     Active Substance: CYCLOPHOSPHAMIDE
     Indication: Post transplant lymphoproliferative disorder
     Dosage: UNK, AS A PART OF RCHOP REGIMEN WITH COMPLETE MEDICAL RESPONSE (CMR)
     Route: 065
     Dates: end: 20190628
  4. CYCLOPHOSPHAMIDE [Suspect]
     Active Substance: CYCLOPHOSPHAMIDE
     Indication: Diffuse large B-cell lymphoma
  5. RITUXIMAB [Suspect]
     Active Substance: RITUXIMAB
     Indication: Post transplant lymphoproliferative disorder
     Dosage: UNK, RITUX AND AS A PART OF RCHOP REGIMEN WITH COMPLETE MEDICAL RESPONSE (CMR)
     Route: 065
     Dates: end: 20190628
  6. RITUXIMAB [Suspect]
     Active Substance: RITUXIMAB
     Indication: Diffuse large B-cell lymphoma
  7. VINCRISTINE [Suspect]
     Active Substance: VINCRISTINE
     Indication: Post transplant lymphoproliferative disorder
     Dosage: UNK, AS A PART OF RCHOP REGIMEN WITH COMPLETE MEDICAL RESPONSE (CMR)
     Route: 065
     Dates: end: 20190628
  8. VINCRISTINE [Suspect]
     Active Substance: VINCRISTINE
     Indication: Diffuse large B-cell lymphoma
  9. PREDNISONE [Suspect]
     Active Substance: PREDNISONE
     Indication: Post transplant lymphoproliferative disorder
     Dosage: UNK, AS A PART OF RCHOP REGIMEN WITH COMPLETE MEDICAL RESPONSE (CMR)
     Route: 065
     Dates: end: 20190628
  10. PREDNISONE [Suspect]
     Active Substance: PREDNISONE
     Indication: Diffuse large B-cell lymphoma

REACTIONS (3)
  - Post transplant lymphoproliferative disorder [Unknown]
  - Intestinal perforation [Unknown]
  - Diffuse large B-cell lymphoma recurrent [Unknown]

NARRATIVE: CASE EVENT DATE: 20230309
